FAERS Safety Report 23153671 (Version 1)
Quarter: 2023Q4

REPORT INFORMATION
  Report Type: Spontaneous
  Country: US (occurrence: None)
  Receive Date: 20231106
  Receipt Date: 20231106
  Transmission Date: 20240110
  Serious: Yes (Life-Threatening, Hospitalization)
  Sender: FDA-Public Use
  Company Number: None

PATIENT
  Age: 63 Year
  Sex: Female
  Weight: 101.25 kg

DRUGS (1)
  1. SEMAGLUTIDE [Suspect]
     Active Substance: SEMAGLUTIDE
     Indication: Weight decreased
     Dosage: OTHER FREQUENCY : 1 X PER WEEK;?
     Route: 030
     Dates: start: 20230904, end: 20231025

REACTIONS (2)
  - Intestinal obstruction [None]
  - Gastrointestinal infection [None]

NARRATIVE: CASE EVENT DATE: 20231028
